FAERS Safety Report 6984915-6 (Version None)
Quarter: 2010Q3

REPORT INFORMATION
  Report Type: 
  Country: None (occurrence: None)
  Receive Date: 20100915
  Receipt Date: 20100903
  Transmission Date: 20110219
  Serious: Yes (Other)
  Sender: FDA-Public Use
  Company Number: US-PFIZER INC-2010112370

PATIENT
  Sex: Female
  Weight: 52.154 kg

DRUGS (4)
  1. XALATAN [Suspect]
     Indication: INTRAOCULAR PRESSURE FLUCTUATION
     Dosage: UNK
     Dates: start: 20100801
  2. WARFARIN [Concomitant]
     Indication: CARDIAC DISORDER
     Dosage: UNK
  3. VALSARTAN [Concomitant]
     Indication: CARDIAC DISORDER
     Dosage: UNK
  4. AMLODIPINE [Concomitant]
     Indication: CARDIAC DISORDER
     Dosage: UNK

REACTIONS (1)
  - MUSCLE SPASMS [None]
